FAERS Safety Report 21743356 (Version 1)
Quarter: 2022Q4

REPORT INFORMATION
  Report Type: Spontaneous
  Country: CA (occurrence: CA)
  Receive Date: 20221217
  Receipt Date: 20221217
  Transmission Date: 20230113
  Serious: Yes (Other)
  Sender: FDA-Public Use
  Company Number: CA-CELLTRION INC.-2022CA001392

PATIENT

DRUGS (8)
  1. INFLECTRA [Suspect]
     Active Substance: INFLIXIMAB-DYYB
     Indication: Crohn^s disease
     Dosage: 1 DF, 500 MG AT 0,2,6 THEN Q 8 WEEKS
     Route: 042
     Dates: start: 20210927
  2. INFLECTRA [Suspect]
     Active Substance: INFLIXIMAB-DYYB
     Dosage: 1 DF, 500 MG AT 0,2,6 THEN Q 8 WEEKS
     Route: 042
     Dates: start: 20211110
  3. INFLECTRA [Suspect]
     Active Substance: INFLIXIMAB-DYYB
     Dosage: 1 DF, 500 MG AT 0,2,6 THEN Q 8 WEEKS
     Route: 042
     Dates: start: 20220105
  4. INFLECTRA [Suspect]
     Active Substance: INFLIXIMAB-DYYB
     Dosage: 1 DF, 500 MG AT 0,2,6 THEN Q 8 WEEKS
     Route: 042
     Dates: start: 20220302, end: 20220302
  5. INFLECTRA [Suspect]
     Active Substance: INFLIXIMAB-DYYB
     Dosage: 500 MG AT 0,2,6 THEN Q 8 WEEKS
     Route: 042
     Dates: start: 20220427
  6. INFLECTRA [Suspect]
     Active Substance: INFLIXIMAB-DYYB
     Dosage: 500 MG AT 0,2,6 THEN Q 8 WEEKS
     Route: 042
     Dates: start: 20220622
  7. INFLECTRA [Suspect]
     Active Substance: INFLIXIMAB-DYYB
     Dosage: 500 MG AT 0,2,6 THEN Q 8 WEEKS
     Route: 042
     Dates: start: 20221014
  8. INFLECTRA [Suspect]
     Active Substance: INFLIXIMAB-DYYB
     Dosage: 500 MG AT 0,2,6 THEN Q 8 WEEKS
     Route: 042
     Dates: start: 20221206

REACTIONS (7)
  - Anastomotic ulcer [Not Recovered/Not Resolved]
  - Off label use [Unknown]
  - Intentional product use issue [Unknown]
  - Off label use [Unknown]
  - Nerve compression [Recovered/Resolved]
  - Haemoglobin decreased [Not Recovered/Not Resolved]
  - Iron deficiency anaemia [Not Recovered/Not Resolved]

NARRATIVE: CASE EVENT DATE: 20220101
